FAERS Safety Report 7522300-9 (Version None)
Quarter: 2011Q2

REPORT INFORMATION
  Report Type: 
  Country: None (occurrence: None)
  Receive Date: 20110603
  Receipt Date: 20110519
  Transmission Date: 20111010
  Serious: Yes (Other)
  Sender: FDA-Public Use
  Company Number: PHHY2011US42667

PATIENT
  Age: 65 Year
  Sex: Female

DRUGS (4)
  1. ACIPHEX [Concomitant]
  2. RECLAST [Suspect]
     Dosage: 5 MG,
     Route: 042
     Dates: start: 20110509
  3. SIMVASTATIN [Concomitant]
  4. ATENOLOL [Concomitant]

REACTIONS (13)
  - PAIN [None]
  - GRIP STRENGTH DECREASED [None]
  - MIGRAINE [None]
  - ALTERED STATE OF CONSCIOUSNESS [None]
  - PYREXIA [None]
  - PAIN IN EXTREMITY [None]
  - ABDOMINAL PAIN UPPER [None]
  - EATING DISORDER [None]
  - HEADACHE [None]
  - ABASIA [None]
  - ASTHENIA [None]
  - NAUSEA [None]
  - VASODILATATION [None]
